FAERS Safety Report 8378892-3 (Version None)
Quarter: 2012Q2

REPORT INFORMATION
  Report Type: 
  Country: None (occurrence: None)
  Receive Date: 20120522
  Receipt Date: 20120522
  Transmission Date: 20120825
  Serious: Yes (Hospitalization, Other)
  Sender: FDA-Public Use
  Company Number: None

PATIENT
  Age: 26 Year
  Sex: Female
  Weight: 84 kg

DRUGS (1)
  1. AVEENO MOISTURIZER UNSPECIFIED [Suspect]
     Dosage: LESS A DIME, 1XDAY, TOPICAL
     Route: 061

REACTIONS (8)
  - SWELLING FACE [None]
  - PURULENCE [None]
  - FACIAL PAIN [None]
  - PRURITUS [None]
  - RASH MACULAR [None]
  - PHARYNGEAL OEDEMA [None]
  - SKIN EXFOLIATION [None]
  - SCAR [None]
